FAERS Safety Report 20908894 (Version 3)
Quarter: 2022Q3

REPORT INFORMATION
  Report Type: Spontaneous
  Country: US (occurrence: US)
  Receive Date: 20220603
  Receipt Date: 20220719
  Transmission Date: 20221027
  Serious: No
  Sender: FDA-Public Use
  Company Number: US-AIMMUNE THERAPEUTICS, INC.-2022AIMT00423

PATIENT

DRUGS (3)
  1. PALFORZIA [Suspect]
     Active Substance: PEANUT
     Indication: Food allergy
     Dosage: 300 MG, 1X/DAY
     Route: 048
     Dates: start: 20220407, end: 20220523
  2. PALFORZIA [Suspect]
     Active Substance: PEANUT
     Dosage: 150 MG, 1X/DAY, DOSE DECREASED TO ^HALF THE DOSE^
     Route: 048
     Dates: start: 20220524
  3. PALFORZIA [Suspect]
     Active Substance: PEANUT
     Dosage: 240 MG, 1X/DAY, LEVEL 10 FOR 3 MONTHS
     Route: 048

REACTIONS (2)
  - Lip swelling [Unknown]
  - Sensation of foreign body [Unknown]

NARRATIVE: CASE EVENT DATE: 20220501
